FAERS Safety Report 8076822-5 (Version None)
Quarter: 2012Q1

REPORT INFORMATION
  Report Type: 
  Country: None (occurrence: None)
  Receive Date: 20120127
  Receipt Date: 20120118
  Transmission Date: 20120608
  Serious: Yes (Life-Threatening, Other)
  Sender: FDA-Public Use
  Company Number: US-JNJFOC-20120102050

PATIENT
  Sex: Female
  Weight: 41.4 kg

DRUGS (4)
  1. HYDROCORTISONE [Concomitant]
     Indication: PREMEDICATION
  2. PROBIOTICS [Concomitant]
  3. BENADRYL [Concomitant]
     Indication: PREMEDICATION
  4. INFLIXIMAB, RECOMBINANT [Suspect]
     Indication: INFLAMMATORY BOWEL DISEASE
     Route: 042
     Dates: start: 20110204

REACTIONS (2)
  - ANAPHYLACTIC REACTION [None]
  - INFUSION RELATED REACTION [None]
